FAERS Safety Report 25973973 (Version 1)
Quarter: 2025Q4

REPORT INFORMATION
  Report Type: Spontaneous
  Country: US (occurrence: None)
  Receive Date: 20251028
  Receipt Date: 20251028
  Transmission Date: 20260117
  Serious: Yes (Other)
  Sender: FDA-CTU
  Company Number: None

PATIENT
  Age: 37 Year
  Sex: Female
  Weight: 87.75 kg

DRUGS (15)
  1. TALTZ [Suspect]
     Active Substance: IXEKIZUMAB
     Indication: Psoriatic arthropathy
     Dosage: ?1 INJECTION E EVERY 4 WEEKS SUBCUTANEOUS
     Route: 058
     Dates: start: 20250306
  2. TALTZ [Suspect]
     Active Substance: IXEKIZUMAB
     Indication: Psoriasis
  3. ANNOVERA [Concomitant]
     Active Substance: ETHINYL ESTRADIOL\SEGESTERONE ACETATE
  4. BUPROPION [Concomitant]
     Active Substance: BUPROPION
  5. DESVENLAFAXINE [Concomitant]
     Active Substance: DESVENLAFAXINE
  6. RIZATRIPTAN [Concomitant]
     Active Substance: RIZATRIPTAN
  7. UBRELVY [Concomitant]
     Active Substance: UBROGEPANT
  8. METHOTREXATE [Concomitant]
     Active Substance: METHOTREXATE
  9. TALTZ [Concomitant]
     Active Substance: IXEKIZUMAB
  10. FOLIC ACID [Concomitant]
     Active Substance: FOLIC ACID
  11. VITAMINS [Concomitant]
     Active Substance: VITAMINS
  12. CALCIUM [Concomitant]
     Active Substance: CALCIUM
  13. VITAMIN C [Concomitant]
     Active Substance: ASCORBIC ACID
  14. IBUPROFEN [Concomitant]
     Active Substance: IBUPROFEN
  15. ZYRTEC [Concomitant]
     Active Substance: CETIRIZINE HYDROCHLORIDE

REACTIONS (2)
  - Migraine [None]
  - Therapeutic product effect incomplete [None]

NARRATIVE: CASE EVENT DATE: 20250404
